FAERS Safety Report 15561387 (Version 1)
Quarter: 2018Q4

REPORT INFORMATION
  Report Type: Spontaneous
  Country: US (occurrence: US)
  Receive Date: 20181028
  Receipt Date: 20181028
  Transmission Date: 20190205
  Serious: Yes (Disabling)
  Sender: FDA-Public Use
  Company Number: None

PATIENT
  Age: 32 Year
  Sex: Female
  Weight: 54.43 kg

DRUGS (1)
  1. NEXPLANON [Suspect]
     Active Substance: ETONOGESTREL

REACTIONS (26)
  - Pain [None]
  - Intrusive thoughts [None]
  - Paranoia [None]
  - Hormone level abnormal [None]
  - Anxiety [None]
  - Depression [None]
  - Suicidal ideation [None]
  - Panic attack [None]
  - Loss of libido [None]
  - Hot flush [None]
  - Fatigue [None]
  - Apparent death [None]
  - Asthenia [None]
  - Obsessive-compulsive disorder [None]
  - Pyrexia [None]
  - Influenza [None]
  - Decreased appetite [None]
  - Arthralgia [None]
  - Alopecia [None]
  - Mood swings [None]
  - Ill-defined disorder [None]
  - Dyspepsia [None]
  - Insomnia [None]
  - Chills [None]
  - Disease recurrence [None]
  - Nausea [None]

NARRATIVE: CASE EVENT DATE: 20180310
